FAERS Safety Report 5352169-2 (Version None)
Quarter: 2007Q2

REPORT INFORMATION
  Report Type: 
  Country: None (occurrence: None)
  Receive Date: 20070607
  Receipt Date: 20070529
  Transmission Date: 20071010
  Serious: Yes (Hospitalization)
  Sender: FDA-Public Use
  Company Number: GXKR2007US04681

PATIENT
  Age: 95 Year
  Sex: Female

DRUGS (1)
  1. AZITHROMYCIN [Suspect]
     Indication: COUGH

REACTIONS (12)
  - ASTHENIA [None]
  - BIFASCICULAR BLOCK [None]
  - BRADYCARDIA [None]
  - CARDIAC ARREST [None]
  - DIZZINESS [None]
  - ELECTROCARDIOGRAM QT CORRECTED INTERVAL PROLONGED [None]
  - ELECTROCARDIOGRAM T WAVE INVERSION [None]
  - MYOCARDIAL INFARCTION [None]
  - PULSE ABSENT [None]
  - SYNCOPE [None]
  - TORSADE DE POINTES [None]
  - TROPONIN INCREASED [None]
